FAERS Safety Report 11570461 (Version 1)
Quarter: 2015Q3

REPORT INFORMATION
  Report Type: Spontaneous
  Country: US (occurrence: US)
  Receive Date: 20150916
  Receipt Date: 20150916
  Transmission Date: 20151125
  Serious: No
  Sender: FDA-Public Use
  Company Number: US-ELI_LILLY_AND_COMPANY-US200909001586

PATIENT
  Age: 60 Year
  Sex: Female

DRUGS (9)
  1. DARVOCET [Concomitant]
     Active Substance: ACETAMINOPHEN\PROPOXYPHENE HYDROCHLORIDE
     Dosage: UNK, DAILY (1/D)
  2. CALCIUM W/VITAMINS NOS [Concomitant]
  3. FORTEO [Suspect]
     Active Substance: TERIPARATIDE
     Dosage: UNK, UNKNOWN
     Dates: start: 200907, end: 2009
  4. ALEVE [Concomitant]
     Active Substance: NAPROXEN SODIUM
  5. BACLOFEN. [Concomitant]
     Active Substance: BACLOFEN
  6. FORTEO [Suspect]
     Active Substance: TERIPARATIDE
     Dates: start: 2009
  7. SOMA [Concomitant]
     Active Substance: CARISOPRODOL
  8. ZANAFLEX [Concomitant]
     Active Substance: TIZANIDINE HYDROCHLORIDE
  9. CELEXA [Concomitant]
     Active Substance: CITALOPRAM HYDROBROMIDE

REACTIONS (8)
  - Injection site haemorrhage [Unknown]
  - Back pain [Unknown]
  - Injection site pain [Unknown]
  - Injection site pain [Unknown]
  - Injection site urticaria [Unknown]
  - Arthralgia [Unknown]
  - Constipation [Not Recovered/Not Resolved]
  - Injection site bruising [Unknown]

NARRATIVE: CASE EVENT DATE: 2009
